FAERS Safety Report 18083740 (Version 1)
Quarter: 2020Q3

REPORT INFORMATION
  Report Type: Spontaneous
  Country: US (occurrence: US)
  Receive Date: 20200729
  Receipt Date: 20200729
  Transmission Date: 20201103
  Serious: No
  Sender: FDA-Public Use
  Company Number: NVSC2020US211053

PATIENT

DRUGS (1)
  1. PIQRAY [Suspect]
     Active Substance: ALPELISIB
     Indication: PRODUCT USED FOR UNKNOWN INDICATION
     Dosage: 390 MG, QD
     Route: 048
     Dates: start: 20200727, end: 20200727

REACTIONS (3)
  - Vomiting [Unknown]
  - Nausea [Unknown]
  - Hyperglycaemia [Unknown]
